FAERS Safety Report 17172055 (Version 1)
Quarter: 2019Q4

REPORT INFORMATION
  Report Type: Spontaneous
  Country: US (occurrence: US)
  Receive Date: 20191219
  Receipt Date: 20191219
  Transmission Date: 20200122
  Serious: No
  Sender: FDA-Public Use
  Company Number: US-UCBSA-053240

PATIENT
  Sex: Female
  Weight: 68.94 kg

DRUGS (16)
  1. WELLBUTRIN XL [Concomitant]
     Active Substance: BUPROPION HYDROCHLORIDE
     Indication: DEPRESSION
     Dosage: 450 MG (AM)
  2. PERCOCET [Concomitant]
     Active Substance: ACETAMINOPHEN\OXYCODONE HYDROCHLORIDE
     Indication: PAIN
     Dosage: 10/325 MG (AS NEED)
  3. MULTIVITAMIN [Concomitant]
     Active Substance: VITAMINS
     Dosage: 1 PILL (AM)
  4. CALCIUM/VITAMIN D [Concomitant]
     Active Substance: CALCIUM\VITAMIN D
     Dosage: 600 MG/400 IU (AM)
  5. LEVSIN [Concomitant]
     Active Substance: HYOSCYAMINE SULFATE
     Indication: CROHN^S DISEASE
     Dosage: 125 MG (AM AND PM)
  6. IMODIUM [Concomitant]
     Active Substance: LOPERAMIDE HYDROCHLORIDE
     Indication: CROHN^S DISEASE
     Dosage: 4 MG (AM AND PM)
  7. RITALIN [Concomitant]
     Active Substance: METHYLPHENIDATE HYDROCHLORIDE
     Indication: FATIGUE
     Dosage: 10 MG (AS NEED)
  8. PROBIOTICS [Concomitant]
     Active Substance: PROBIOTICS NOS
     Dosage: 1 CAPSULE  (AM)
  9. TURMERIC [Concomitant]
     Active Substance: HERBALS\TURMERIC
     Dosage: 150 MG AM/PM
  10. MELATONIN [Concomitant]
     Active Substance: MELATONIN
     Indication: SOMNOLENCE
     Dosage: 3 MG(PM)
  11. ABILIFY [Concomitant]
     Active Substance: ARIPIPRAZOLE
     Indication: DEPRESSION
     Dosage: 5 MG (AM)
  12. COLOZAL [Concomitant]
     Indication: CROHN^S DISEASE
     Dosage: 3375 MG (AM AND PM)
  13. BIOTIN [Concomitant]
     Active Substance: BIOTIN
     Dosage: 5000 MCG (AM)
  14. CIMZIA [Suspect]
     Active Substance: CERTOLIZUMAB PEGOL
     Indication: CROHN^S DISEASE
     Dosage: 400 MG, EV 4 WEEKS
     Route: 058
     Dates: start: 20110815
  15. LEXAPRO [Concomitant]
     Active Substance: ESCITALOPRAM OXALATE
     Indication: DEPRESSION
     Dosage: 20 MG (AM)
  16. PHENTERMINE. [Concomitant]
     Active Substance: PHENTERMINE
     Indication: WEIGHT DECREASED
     Dosage: 30 MG (AM)

REACTIONS (2)
  - Postoperative wound infection [Unknown]
  - Upper respiratory tract infection [Not Recovered/Not Resolved]

NARRATIVE: CASE EVENT DATE: 2012
